FAERS Safety Report 15482651 (Version 1)
Quarter: 2018Q4

REPORT INFORMATION
  Report Type: Spontaneous
  Country: US (occurrence: US)
  Receive Date: 20181003
  Receipt Date: 20181003
  Transmission Date: 20190205
  Serious: No
  Sender: FDA-Public Use
  Company Number: None

PATIENT
  Age: 75 Year
  Sex: Male
  Weight: 130.63 kg

DRUGS (1)
  1. VANCOMYCIN [Suspect]
     Active Substance: VANCOMYCIN
     Indication: INFECTION
     Route: 042
     Dates: start: 20180612, end: 20180619

REACTIONS (4)
  - Linear IgA disease [None]
  - Blister [None]
  - Rash erythematous [None]
  - Chills [None]

NARRATIVE: CASE EVENT DATE: 20180619
